FAERS Safety Report 8621435-7 (Version None)
Quarter: 2012Q3

REPORT INFORMATION
  Report Type: 
  Country: None (occurrence: None)
  Receive Date: 20120824
  Receipt Date: 20120820
  Transmission Date: 20120928
  Serious: Yes (Life-Threatening, Hospitalization)
  Sender: FDA-Public Use
  Company Number: JP-ABBOTT-12P-087-0963775-00

PATIENT
  Age: 67 Year
  Sex: Male

DRUGS (22)
  1. DOXAZOSIN MESYLATE [Suspect]
     Indication: PROPHYLAXIS
  2. LOXONIN [Suspect]
     Indication: PRODUCT USED FOR UNKNOWN INDICATION
  3. NSAID'S [Concomitant]
     Indication: PRODUCT USED FOR UNKNOWN INDICATION
  4. CERNILTON [Concomitant]
     Indication: PRODUCT USED FOR UNKNOWN INDICATION
  5. DOXAZOSIN MESYLATE [Suspect]
     Indication: HYPERTENSION
  6. VOGLIBOSE [Suspect]
     Indication: PRODUCT USED FOR UNKNOWN INDICATION
  7. PREDNISONE TAB [Concomitant]
     Indication: PRODUCT USED FOR UNKNOWN INDICATION
  8. FOSRENOL [Concomitant]
     Indication: PRODUCT USED FOR UNKNOWN INDICATION
  9. CLARITHROMYCIN [Suspect]
     Indication: NASOPHARYNGITIS
     Route: 048
     Dates: start: 20100718
  10. RABEPRAZOLE SODIUM [Suspect]
     Indication: DRUG THERAPY
  11. WARFARIN SODIUM [Concomitant]
     Indication: PRODUCT USED FOR UNKNOWN INDICATION
  12. OPALMON [Concomitant]
     Indication: PRODUCT USED FOR UNKNOWN INDICATION
  13. ASPIRIN [Suspect]
     Indication: NASOPHARYNGITIS
     Dosage: COMBINATION GRANULE
     Route: 048
     Dates: start: 20100718
  14. ASPENON [Suspect]
     Indication: ARRHYTHMIA PROPHYLAXIS
  15. ALDOMET [Suspect]
     Indication: PRODUCT USED FOR UNKNOWN INDICATION
  16. SODIUM POLYSTYRENE SULFONATE [Concomitant]
     Indication: PRODUCT USED FOR UNKNOWN INDICATION
  17. LASIX [Suspect]
     Indication: PRODUCT USED FOR UNKNOWN INDICATION
  18. TAMSULOSIN HCL [Concomitant]
     Indication: PRODUCT USED FOR UNKNOWN INDICATION
  19. ATELEC [Concomitant]
     Indication: PRODUCT USED FOR UNKNOWN INDICATION
  20. PRECIPITATED CALCIUM CARBONATE [Concomitant]
     Indication: PRODUCT USED FOR UNKNOWN INDICATION
  21. COLESTIMIDE [Concomitant]
     Indication: PRODUCT USED FOR UNKNOWN INDICATION
  22. OLMESARTAN MEDOXOMIL [Concomitant]
     Indication: PRODUCT USED FOR UNKNOWN INDICATION

REACTIONS (6)
  - CARDIO-RESPIRATORY ARREST [None]
  - PNEUMONIA [None]
  - PANCYTOPENIA [None]
  - SEPTIC SHOCK [None]
  - AGRANULOCYTOSIS [None]
  - LARGE INTESTINE PERFORATION [None]
